FAERS Safety Report 5683044-1 (Version None)
Quarter: 2008Q1

REPORT INFORMATION
  Report Type: 
  Country: None (occurrence: None)
  Receive Date: 20080327
  Receipt Date: 20080318
  Transmission Date: 20080703
  Serious: Yes (Other)
  Sender: FDA-Public Use
  Company Number: PHBS2008US03594

PATIENT
  Age: 68 Year
  Sex: Male

DRUGS (1)
  1. ZOLEDRONIC ACID [Suspect]
     Dosage: 4 MG, QMO
     Route: 042

REACTIONS (5)
  - BONE DISORDER [None]
  - DEBRIDEMENT [None]
  - OSTEONECROSIS [None]
  - STENT PLACEMENT [None]
  - TOOTH EXTRACTION [None]
